FAERS Safety Report 4358729-X (Version None)
Quarter: 2004Q2

REPORT INFORMATION
  Report Type: 
  Country: None (occurrence: None)
  Receive Date: 20040511
  Receipt Date: 20040504
  Transmission Date: 20050107
  Serious: Yes (Death)
  Sender: FDA-Public Use
  Company Number: 2004029729

PATIENT
  Age: 68 Year
  Sex: Male

DRUGS (5)
  1. AMLODIPINE [Suspect]
     Indication: ILL-DEFINED DISORDER
     Dosage: 5 MG (1 IN 1 D), ORAL
     Route: 048
  2. NAFTIDROFURYL (NAFTIDROFURYL) [Suspect]
     Indication: ILL-DEFINED DISORDER
     Dosage: 400 MG (200 MG, 2 IN 1 D), ORAL
     Route: 048
  3. IBUPROFEN [Suspect]
     Indication: PYREXIA
     Dosage: (AS NEEDED), ORAL
     Route: 048
     Dates: start: 20011105
  4. OXOMEMAZINE (OXOMEMAZINE) [Suspect]
     Indication: COUGH
     Dosage: 45 ML (1.5 MG, 3 IN 1 D), ORAL
     Route: 048
     Dates: start: 20011105
  5. CLARITHROMYCIN [Suspect]
     Indication: ILL-DEFINED DISORDER
     Dosage: 500 MG (250 MG, 2 IN 1 D), ORAL
     Route: 048
     Dates: start: 20011105

REACTIONS (1)
  - SUDDEN DEATH [None]
